FAERS Safety Report 24097381 (Version 1)
Quarter: 2024Q3

REPORT INFORMATION
  Report Type: Spontaneous
  Country: US (occurrence: None)
  Receive Date: 20240716
  Receipt Date: 20240716
  Transmission Date: 20241016
  Serious: Yes (Death)
  Sender: Public
  Company Number: None

PATIENT
  Age: 65 Year
  Sex: Female

DRUGS (11)
  1. OPDIVO [Suspect]
     Active Substance: NIVOLUMAB
     Indication: Lung carcinoma cell type unspecified stage 0
     Dosage: OTHER FREQUENCY : EVERY28DAYS ;?
     Route: 042
     Dates: start: 20240618, end: 20240712
  2. ACETAMINOPHEN [Concomitant]
     Active Substance: ACETAMINOPHEN
  3. DEXAMETHASONE [Concomitant]
     Active Substance: DEXAMETHASONE
  4. FEXOFENADINE [Concomitant]
     Active Substance: FEXOFENADINE HYDROCHLORIDE
  5. GABAPENTIN [Concomitant]
     Active Substance: GABAPENTIN
  6. IBUPROFEN [Concomitant]
     Active Substance: IBUPROFEN
  7. MORPHINE SULFATE [Concomitant]
     Active Substance: MORPHINE SULFATE
  8. NARCAN [Concomitant]
     Active Substance: NALOXONE HYDROCHLORIDE
  9. NICOTINE [Concomitant]
     Active Substance: NICOTINE
  10. ONDANSETRON [Concomitant]
     Active Substance: ONDANSETRON
  11. OXYCODONE [Concomitant]
     Active Substance: OXYCODONE

REACTIONS (1)
  - Death [None]

NARRATIVE: CASE EVENT DATE: 20240712
